FAERS Safety Report 20120548 (Version 3)
Quarter: 2022Q2

REPORT INFORMATION
  Report Type: Spontaneous
  Country: US (occurrence: US)
  Receive Date: 20211126
  Receipt Date: 20220424
  Transmission Date: 20220721
  Serious: No
  Sender: FDA-Public Use
  Company Number: US-SA-SAC20211119001082

PATIENT
  Age: 28 Year
  Sex: Male

DRUGS (1)
  1. DUPIXENT [Suspect]
     Active Substance: DUPILUMAB
     Indication: Dermatitis atopic
     Dosage: 300 MG, QOW
     Route: 058
     Dates: start: 20210929

REACTIONS (5)
  - Fungal infection [Unknown]
  - Decreased immune responsiveness [Unknown]
  - Erythema [Unknown]
  - Dermatitis atopic [Unknown]
  - Erythema [Unknown]
